FAERS Safety Report 8513583-7 (Version None)
Quarter: 2012Q3

REPORT INFORMATION
  Report Type: 
  Country: None (occurrence: None)
  Receive Date: 20120717
  Receipt Date: 20120711
  Transmission Date: 20120928
  Serious: No
  Sender: FDA-Public Use
  Company Number: US-PFIZER INC-2012143026

PATIENT
  Sex: Female
  Weight: 52.154 kg

DRUGS (24)
  1. CHANTIX [Suspect]
     Indication: SMOKING CESSATION THERAPY
     Dosage: 0.5 MG, DAILY
     Route: 048
  2. FLUOXETINE [Concomitant]
     Dosage: UNK
  3. ABILIFY [Concomitant]
     Indication: ANXIETY
  4. MULTI-VITAMINS [Concomitant]
     Dosage: UNK
  5. SARAFEM [Concomitant]
     Indication: OBSESSIVE-COMPULSIVE DISORDER
  6. ABILIFY [Concomitant]
     Indication: DEPRESSION
     Dosage: 10 MG, DAILY
  7. CHANTIX [Suspect]
     Dosage: 1/2 TABLET (1 MG TABLET) ONCE DAILY
     Route: 048
     Dates: start: 20120101, end: 20120619
  8. DIAZEPAM [Concomitant]
     Indication: ANXIETY
  9. INNOPRAN XL [Concomitant]
     Indication: HYPERTENSION
     Dosage: 80 MG, DAILY
  10. OMEPRAZOLE [Concomitant]
     Indication: GASTROOESOPHAGEAL REFLUX DISEASE
     Dosage: 20 MG, DAILY
  11. DOXEPIN [Concomitant]
     Indication: SLEEP DISORDER
     Dosage: 25 MG, AS NEEDED
  12. ALLERTEC [Concomitant]
     Indication: HYPERSENSITIVITY
     Dosage: 10 MG, DAILY
  13. INNOPRAN XL [Concomitant]
     Indication: PALPITATIONS
  14. MICRONOR [Concomitant]
     Indication: CONTRACEPTION
     Dosage: 0.35 MG, DAILY
  15. DIAZEPAM [Concomitant]
     Indication: INSOMNIA
     Dosage: 10 MG, AS NEEDED
  16. CHANTIX [Suspect]
     Dosage: HALF TABLET OF 0.5MG DAILY
     Route: 048
     Dates: start: 20120419, end: 20120101
  17. SARAFEM [Concomitant]
     Indication: ANXIETY
  18. ABILIFY [Concomitant]
     Indication: OBSESSIVE-COMPULSIVE DISORDER
  19. DIAZEPAM [Concomitant]
     Indication: FIBROMYALGIA
  20. CHANTIX [Suspect]
     Dosage: 1 MG, 2X/DAY
     Route: 048
     Dates: start: 20120101, end: 20120101
  21. SARAFEM [Concomitant]
     Indication: DEPRESSION
     Dosage: 40 MG, DAILY
  22. SARAFEM [Concomitant]
     Indication: PREMENSTRUAL SYNDROME
  23. ABILIFY [Concomitant]
     Indication: PREMENSTRUAL SYNDROME
  24. DIAZEPAM [Concomitant]
     Indication: MUSCLE SPASMS

REACTIONS (5)
  - DIZZINESS [None]
  - HYPOAESTHESIA [None]
  - VOMITING [None]
  - PARAESTHESIA [None]
  - HYPOAESTHESIA ORAL [None]
